FAERS Safety Report 19834324 (Version 1)
Quarter: 2021Q3

REPORT INFORMATION
  Report Type: Spontaneous
  Country: NL (occurrence: DE)
  Receive Date: 20210915
  Receipt Date: 20210915
  Transmission Date: 20211014
  Serious: Yes (Other)
  Sender: FDA-Public Use
  Company Number: DE-FRESENIUS KABI-FK202109620

PATIENT
  Age: 83 Year
  Sex: Male

DRUGS (10)
  1. CISATRACURIUM INJECTION (MANUFACTURER UNKNOWN) [Suspect]
     Active Substance: CISATRACURIUM
     Indication: ANAESTHESIA PROCEDURE
     Route: 042
     Dates: start: 20210817, end: 20210817
  2. CEFUROXIME (MANUFACTURER UNKNOWN) [Suspect]
     Active Substance: CEFUROXIME
     Indication: PRODUCT USED FOR UNKNOWN INDICATION
     Route: 065
  3. FENTANYL. [Suspect]
     Active Substance: FENTANYL
     Indication: ANAESTHESIA PROCEDURE
     Route: 042
     Dates: start: 20210817, end: 20210817
  4. DEXAMETHASONE. [Suspect]
     Active Substance: DEXAMETHASONE
     Indication: PRODUCT USED FOR UNKNOWN INDICATION
     Route: 065
  5. FACTOR I (FIBRINOGEN)/THROMBIN/FACTOR XIII (FIBRIN STABILISING FACTOR)/APROTININ/CALCIUM CHLORIDE [Suspect]
     Active Substance: APROTININ\CALCIUM CHLORIDE\FIBRINOGEN HUMAN\FACTOR XIII CONCENTRATE (HUMAN)\THROMBIN
     Route: 061
     Dates: start: 20210805
  6. CISATRACURIUM BESILATE [Suspect]
     Active Substance: CISATRACURIUM BESYLATE
     Indication: PRODUCT USED FOR UNKNOWN INDICATION
     Route: 065
  7. PROPOFOL. [Suspect]
     Active Substance: PROPOFOL
     Indication: ANAESTHESIA PROCEDURE
     Dosage: PROPOFOL BAXTER 10 MG / ML MCT EMULSION FOR INJECTION / INFUSION
     Route: 042
     Dates: start: 20210817, end: 20210817
  8. FACTOR I (FIBRINOGEN)/THROMBIN/FACTOR XIII (FIBRIN STABILISING FACTOR)/APROTININ/CALCIUM CHLORIDE [Suspect]
     Active Substance: APROTININ\CALCIUM CHLORIDE\FIBRINOGEN HUMAN\FACTOR XIII CONCENTRATE (HUMAN)\THROMBIN
     Indication: SURGERY
     Dosage: TISSEEL 2ML
     Route: 061
     Dates: start: 20210817, end: 20210817
  9. THROMBIN [Suspect]
     Active Substance: THROMBIN
     Indication: SURGERY
     Route: 061
     Dates: start: 20210817, end: 20210817
  10. CLONIDINE. [Suspect]
     Active Substance: CLONIDINE
     Indication: PRODUCT USED FOR UNKNOWN INDICATION
     Route: 065

REACTIONS (2)
  - Shock [Recovered/Resolved]
  - Anaphylactic reaction [Recovered/Resolved]

NARRATIVE: CASE EVENT DATE: 20210817
